FAERS Safety Report 9153243 (Version 1)
Quarter: 2013Q1

REPORT INFORMATION
  Report Type: Spontaneous
  Country: JP (occurrence: JP)
  Receive Date: 20130311
  Receipt Date: 20130311
  Transmission Date: 20140127
  Serious: Yes (Hospitalization)
  Sender: FDA-Public Use
  Company Number: JP-BIOGENIDEC-2013BI020999

PATIENT
  Age: 15 Year
  Sex: Female
  Weight: 58 kg

DRUGS (4)
  1. AVONEX [Suspect]
     Indication: MULTIPLE SCLEROSIS
     Route: 030
  2. AVONEX [Suspect]
     Indication: MULTIPLE SCLEROSIS
     Route: 030
  3. INTERFERON BETA 1B [Concomitant]
  4. AZATHIOPRINE [Concomitant]

REACTIONS (13)
  - Gait disturbance [Not Recovered/Not Resolved]
  - Paralysis [Unknown]
  - Monoplegia [Unknown]
  - Nuclear magnetic resonance imaging abnormal [Unknown]
  - Visual impairment [Unknown]
  - Headache [Unknown]
  - Pyrexia [Unknown]
  - Nausea [Unknown]
  - White blood cell count decreased [Unknown]
  - Malaise [Unknown]
  - Alopecia [Unknown]
  - Multiple sclerosis relapse [Recovered/Resolved]
  - Asthenia [Unknown]
